FAERS Safety Report 8620772-X (Version None)
Quarter: 2012Q3

REPORT INFORMATION
  Report Type: 
  Country: None (occurrence: None)
  Receive Date: 20120824
  Receipt Date: 20120815
  Transmission Date: 20120928
  Serious: Yes (Other)
  Sender: FDA-Public Use
  Company Number: US-009507513-1208USA007421

PATIENT

DRUGS (1)
  1. IMPLANON [Suspect]
     Indication: CONTRACEPTION
     Dosage: UNK
     Route: 059
     Dates: start: 20100427

REACTIONS (5)
  - MIGRAINE [None]
  - HOT FLUSH [None]
  - IMPLANT SITE PAIN [None]
  - CONVULSION [None]
  - BREAST PAIN [None]
